FAERS Safety Report 15954316 (Version 1)
Quarter: 2019Q1

REPORT INFORMATION
  Report Type: Spontaneous
  Country: DE (occurrence: DE)
  Receive Date: 20190212
  Receipt Date: 20190212
  Transmission Date: 20190417
  Serious: Yes (Death, Hospitalization, Other)
  Sender: FDA-Public Use
  Company Number: PHHY2019DE032807

PATIENT
  Age: 60 Year
  Sex: Male

DRUGS (4)
  1. TOCILIZUMAB. [Suspect]
     Active Substance: TOCILIZUMAB
     Dosage: 520 MG, UNK
     Route: 065
  2. TOCILIZUMAB. [Suspect]
     Active Substance: TOCILIZUMAB
     Indication: RHEUMATOID ARTHRITIS
     Dosage: 720 MG, UNK
     Route: 065
  3. METHOTREXAT [Suspect]
     Active Substance: METHOTREXATE
     Indication: RHEUMATOID ARTHRITIS
     Dosage: 25 MG, UNK
     Route: 065
  4. METHOTREXAT [Suspect]
     Active Substance: METHOTREXATE
     Dosage: 20 MG, UNK
     Route: 065

REACTIONS (10)
  - Multiple organ dysfunction syndrome [Fatal]
  - Pancytopenia [Unknown]
  - Septic shock [Fatal]
  - Pancreatic calcification [Unknown]
  - Pulmonary tuberculosis [Unknown]
  - Urinary tract infection bacterial [Unknown]
  - Paraplegia [Unknown]
  - Decubitus ulcer [Unknown]
  - Portal vein thrombosis [Unknown]
  - Staphylococcal sepsis [Fatal]

NARRATIVE: CASE EVENT DATE: 20161204
